FAERS Safety Report 6108578-7 (Version None)
Quarter: 2009Q1

REPORT INFORMATION
  Report Type: 
  Country: None (occurrence: None)
  Receive Date: 20090303
  Receipt Date: 20090220
  Transmission Date: 20090719
  Serious: Yes (Life-Threatening, Hospitalization, Disabling, Other)
  Sender: FDA-Public Use
  Company Number: US025477

PATIENT
  Age: 58 Year
  Sex: Female
  Weight: 128 kg

DRUGS (14)
  1. TRISENOX [Suspect]
     Indication: ACUTE PROMYELOCYTIC LEUKAEMIA
     Dosage: 20 MG/KG QD INTRAVENOUS
     Route: 042
     Dates: start: 20090131
  2. ATRA [Suspect]
     Indication: ACUTE PROMYELOCYTIC LEUKAEMIA
     Dosage: 40 MG BID
     Dates: start: 20090128
  3. TAZOCIN [Concomitant]
  4. VANCOMYCIN [Concomitant]
  5. SALBUTAMOL NEBULIZERS [Concomitant]
  6. ATROVENT [Concomitant]
  7. FUROSEMIDE [Concomitant]
  8. BUPRENORPHINE HCL [Concomitant]
  9. TIOTROPIUM [Concomitant]
  10. ESOMEPRAZOLE [Concomitant]
  11. SERETIDE /01420901/ [Concomitant]
  12. NYSTATIN [Concomitant]
  13. AMILORIDE HYDROCHLORIDE [Concomitant]
  14. AMPHOTERICIN B [Concomitant]

REACTIONS (2)
  - ACUTE PROMYELOCYTIC LEUKAEMIA DIFFERENTIATION SYNDROME [None]
  - DRUG INTERACTION [None]
